FAERS Safety Report 5074885-2 (Version None)
Quarter: 2006Q3

REPORT INFORMATION
  Report Type: 
  Country: None (occurrence: None)
  Receive Date: 20060717
  Receipt Date: 20051107
  Transmission Date: 20061208
  Serious: No
  Sender: FDA-Public Use
  Company Number: 2005002172

PATIENT
  Age: 70 Year
  Sex: Female

DRUGS (3)
  1. TARCEVA [Suspect]
     Indication: NON-SMALL CELL LUNG CANCER
     Dosage: 150 MG (QD), ORAL
     Route: 049
  2. COUMADIN [Suspect]
     Dosage: SEE IMAGE
     Dates: end: 20051104
  3. COUMADIN [Suspect]
     Dosage: SEE IMAGE
     Dates: start: 20051105

REACTIONS (1)
  - HAEMOPTYSIS [None]
